FAERS Safety Report 21527846 (Version 2)
Quarter: 2022Q4

REPORT INFORMATION
  Report Type: Spontaneous
  Country: JP (occurrence: JP)
  Receive Date: 20221031
  Receipt Date: 20221230
  Transmission Date: 20230113
  Serious: Yes (Life-Threatening, Hospitalization, Other)
  Sender: FDA-Public Use
  Company Number: JP-SA-SAC20221025001336

PATIENT
  Age: 56 Year
  Sex: Female

DRUGS (2)
  1. OXALIPLATIN [Suspect]
     Active Substance: OXALIPLATIN
     Indication: Colon cancer stage III
     Dosage: UNK INJECTION
     Route: 065
  2. CAPECITABINE [Concomitant]
     Active Substance: CAPECITABINE
     Indication: Colon cancer stage III
     Dosage: UNK

REACTIONS (9)
  - Febrile neutropenia [Unknown]
  - Pyrexia [Unknown]
  - Gastroenteritis eosinophilic [Recovering/Resolving]
  - Diarrhoea [Recovering/Resolving]
  - Neutropenic colitis [Recovered/Resolved]
  - Large intestinal ulcer [Recovered/Resolved]
  - Oedema mucosal [Recovered/Resolved]
  - Sepsis [Recovering/Resolving]
  - Gastrointestinal infection [Recovering/Resolving]
